FAERS Safety Report 12240372 (Version 1)
Quarter: 2016Q2

REPORT INFORMATION
  Report Type: Report from Study
  Country: EC (occurrence: EC)
  Receive Date: 20160405
  Receipt Date: 20160405
  Transmission Date: 20160815
  Serious: Yes (Other)
  Sender: FDA-Public Use
  Company Number: EC-ABBVIE-16K-047-1596749-00

PATIENT
  Age: 47 Year
  Sex: Female
  Weight: 65 kg

DRUGS (1)
  1. HUMIRA [Suspect]
     Active Substance: ADALIMUMAB
     Indication: PSORIATIC ARTHROPATHY
     Route: 058
     Dates: start: 20141224, end: 20151215

REACTIONS (2)
  - Appendicitis [Recovering/Resolving]
  - Wound complication [Recovering/Resolving]

NARRATIVE: CASE EVENT DATE: 20160303
